FAERS Safety Report 7802296-2 (Version None)
Quarter: 2011Q4

REPORT INFORMATION
  Report Type: 
  Country: None (occurrence: None)
  Receive Date: 20111007
  Receipt Date: 20110926
  Transmission Date: 20120403
  Serious: No
  Sender: FDA-Public Use
  Company Number: AU-MUTUAL PHARMACEUTICAL COMPANY, INC.-SFTM20110005

PATIENT
  Age: 82 Year
  Sex: Male
  Weight: 69 kg

DRUGS (11)
  1. VENLAFAXINE [Concomitant]
     Indication: PRODUCT USED FOR UNKNOWN INDICATION
     Route: 048
  2. VENLAFAXINE [Concomitant]
     Route: 048
  3. OMEPRAZOLE [Concomitant]
     Indication: PRODUCT USED FOR UNKNOWN INDICATION
     Route: 048
  4. SULFAMETHOXAZOLE AND TRIMETHOPRIM [Suspect]
     Route: 048
  5. CEFEPIME [Concomitant]
     Indication: INFECTION
  6. THIAMINE HCL [Concomitant]
     Route: 048
  7. ESOMEPRAZOLE SODIUM [Concomitant]
     Indication: PRODUCT USED FOR UNKNOWN INDICATION
  8. SODIUM HEPARIN [Concomitant]
     Indication: PRODUCT USED FOR UNKNOWN INDICATION
     Route: 058
  9. SULFAMETHOXAZOLE AND TRIMETHOPRIM [Suspect]
     Indication: RESPIRATORY TRACT INFECTION
     Route: 048
  10. VENLAFAXINE MODIFIED RELEASE [Concomitant]
     Indication: PRODUCT USED FOR UNKNOWN INDICATION
     Route: 048
  11. SUPRADYN [Concomitant]
     Indication: PRODUCT USED FOR UNKNOWN INDICATION
     Route: 048

REACTIONS (2)
  - DELIRIUM [None]
  - GAIT APRAXIA [None]
